FAERS Safety Report 24826927 (Version 1)
Quarter: 2025Q1

REPORT INFORMATION
  Report Type: Spontaneous
  Country: GB (occurrence: GB)
  Receive Date: 20250109
  Receipt Date: 20250109
  Transmission Date: 20250408
  Serious: Yes (Other)
  Sender: SANDOZ
  Company Number: None

PATIENT
  Age: 89 Year
  Sex: Female
  Weight: 43 kg

DRUGS (27)
  1. GABAPENTIN [Suspect]
     Active Substance: GABAPENTIN
     Indication: Ill-defined disorder
     Dosage: 100 MG, Q8H, TAKE ONE 3 TIMES/DAY
     Route: 065
     Dates: start: 20241205
  2. ACETYLCYSTEINE [Concomitant]
     Active Substance: ACETYLCYSTEINE
     Indication: Ill-defined disorder
     Route: 065
     Dates: start: 20241203
  3. ACIDEX ADVANCE [Concomitant]
     Indication: Ill-defined disorder
     Route: 065
     Dates: start: 20240820
  4. ALENDRONIC ACID [Concomitant]
     Active Substance: ALENDRONIC ACID
     Indication: Ill-defined disorder
     Route: 065
     Dates: start: 20240820
  5. AZITHROMYCIN [Concomitant]
     Active Substance: AZITHROMYCIN
     Indication: Ill-defined disorder
     Route: 065
     Dates: start: 20241107
  6. BISOPROLOL [Concomitant]
     Active Substance: BISOPROLOL
     Indication: Ill-defined disorder
     Route: 065
     Dates: start: 20240820
  7. BUPRENORPHINE [Concomitant]
     Active Substance: BUPRENORPHINE
     Indication: Ill-defined disorder
     Route: 065
     Dates: start: 20241223
  8. CARBOCYSTEINE [Concomitant]
     Active Substance: CARBOCYSTEINE
     Indication: Ill-defined disorder
     Route: 065
     Dates: start: 20241202, end: 20241222
  9. CLOPIDOGREL [Concomitant]
     Active Substance: CLOPIDOGREL BISULFATE
     Indication: Ill-defined disorder
     Route: 065
     Dates: start: 20240820
  10. CODEINE PHOSPHATE [Concomitant]
     Active Substance: CODEINE PHOSPHATE
     Indication: Ill-defined disorder
     Route: 065
     Dates: start: 20240820
  11. METHYLPREDNISOLONE ACETATE [Concomitant]
     Active Substance: METHYLPREDNISOLONE ACETATE
     Indication: Ill-defined disorder
     Route: 065
     Dates: start: 20241014, end: 20241015
  12. DOXYCYCLINE [Concomitant]
     Active Substance: DOXYCYCLINE
     Indication: Ill-defined disorder
     Route: 065
     Dates: start: 20240919, end: 20241107
  13. ENSURE PLUS JUCE [Concomitant]
     Indication: Ill-defined disorder
     Route: 065
     Dates: start: 20240820
  14. EPIPEN [Concomitant]
     Active Substance: EPINEPHRINE
     Indication: Ill-defined disorder
     Route: 065
     Dates: start: 20240820
  15. FAMOTIDINE [Concomitant]
     Active Substance: FAMOTIDINE
     Indication: Ill-defined disorder
     Route: 065
     Dates: start: 20240820
  16. NITROGLYCERIN [Concomitant]
     Active Substance: NITROGLYCERIN
     Indication: Ill-defined disorder
     Route: 065
     Dates: start: 20240820
  17. IBUPROFEN [Concomitant]
     Active Substance: IBUPROFEN
     Indication: Ill-defined disorder
     Route: 065
     Dates: start: 20240820
  18. LIDOCAINE [Concomitant]
     Active Substance: LIDOCAINE
     Indication: Ill-defined disorder
     Route: 065
     Dates: start: 20241014, end: 20241015
  19. NACSYS [Concomitant]
     Indication: Ill-defined disorder
     Route: 065
     Dates: start: 20240820
  20. NEFOPAM [Concomitant]
     Active Substance: NEFOPAM
     Indication: Ill-defined disorder
     Route: 065
     Dates: start: 20240820
  21. NYSTATIN [Concomitant]
     Active Substance: NYSTATIN
     Indication: Ill-defined disorder
     Route: 065
     Dates: start: 20240820
  22. OXYBUTYNIN [Concomitant]
     Active Substance: OXYBUTYNIN
     Indication: Ill-defined disorder
     Route: 065
     Dates: start: 20240820
  23. ACETAMINOPHEN [Concomitant]
     Active Substance: ACETAMINOPHEN
     Indication: Ill-defined disorder
     Route: 065
     Dates: start: 20240820
  24. SODIUM CHLORIDE [Concomitant]
     Active Substance: SODIUM CHLORIDE
     Indication: Ill-defined disorder
     Route: 065
     Dates: start: 20240820
  25. BECLOMETHASONE DIPROPIONATE\FORMOTEROL FUMARATE\GLYCOPYRROLATE [Concomitant]
     Active Substance: BECLOMETHASONE DIPROPIONATE\FORMOTEROL FUMARATE\GLYCOPYRROLATE
     Indication: Ill-defined disorder
     Route: 065
     Dates: start: 20240820, end: 20241003
  26. BUDESONIDE\FORMOTEROL\GLYCOPYRRONIUM [Concomitant]
     Active Substance: BUDESONIDE\FORMOTEROL\GLYCOPYRRONIUM
     Indication: Ill-defined disorder
     Route: 065
     Dates: start: 20241003
  27. VENTOLIN [Concomitant]
     Active Substance: ALBUTEROL SULFATE
     Indication: Ill-defined disorder
     Route: 065
     Dates: start: 20240820

REACTIONS (2)
  - Chronic obstructive pulmonary disease [Unknown]
  - Dyspnoea [Recovered/Resolved]

NARRATIVE: CASE EVENT DATE: 20241223
